FAERS Safety Report 16956565 (Version 1)
Quarter: 2019Q4

REPORT INFORMATION
  Report Type: Spontaneous
  Country: AU (occurrence: AU)
  Receive Date: 20191024
  Receipt Date: 20191024
  Transmission Date: 20200122
  Serious: Yes (Other)
  Sender: FDA-Public Use
  Company Number: AU-AMGEN-AUSSP2019171940

PATIENT

DRUGS (2)
  1. CALTRATE [Concomitant]
     Active Substance: CALCIUM CARBONATE
  2. PROLIA [Suspect]
     Active Substance: DENOSUMAB
     Indication: PRODUCT USED FOR UNKNOWN INDICATION
     Dosage: UNK
     Route: 065

REACTIONS (6)
  - Fracture [Unknown]
  - Pubis fracture [Unknown]
  - Spinal compression fracture [Unknown]
  - Femoral neck fracture [Unknown]
  - Tibia fracture [Unknown]
  - Fibula fracture [Unknown]
